FAERS Safety Report 7496117-8 (Version None)
Quarter: 2011Q2

REPORT INFORMATION
  Report Type: 
  Country: None (occurrence: None)
  Receive Date: 20110523
  Receipt Date: 20110509
  Transmission Date: 20111010
  Serious: Yes (Other)
  Sender: FDA-Public Use
  Company Number: PHHY2011FR40097

PATIENT
  Age: 72 Year
  Sex: Male

DRUGS (8)
  1. DIGOXIN [Concomitant]
  2. METFORMIN HCL [Concomitant]
     Dosage: 1 DF, UNK
  3. PREVISCAN [Concomitant]
     Dosage: UNK
  4. DIAMICRON [Concomitant]
  5. INDAPAMIDE [Concomitant]
  6. RASILEZ HCT [Suspect]
     Dosage: 1 DF, QD
     Route: 048
     Dates: start: 20110301, end: 20110507
  7. ATENOLOL [Concomitant]
     Dosage: 150 MG, DAILY
  8. ATORVASTATIN [Concomitant]

REACTIONS (7)
  - DRY MOUTH [None]
  - FATIGUE [None]
  - ARTHRALGIA [None]
  - HYPERGLYCAEMIA [None]
  - HAEMOGLOBIN DECREASED [None]
  - SOMNOLENCE [None]
  - FLANK PAIN [None]
